FAERS Safety Report 11444124 (Version 4)
Quarter: 2015Q4

REPORT INFORMATION
  Report Type: Report from Study
  Country: US (occurrence: US)
  Receive Date: 20150901
  Receipt Date: 20151009
  Transmission Date: 20160304
  Serious: Yes (Other)
  Sender: FDA-Public Use
  Company Number: US-AMGEN-USASP2015088830

PATIENT
  Age: 29 Year
  Sex: Male

DRUGS (1)
  1. ENBREL [Suspect]
     Active Substance: ETANERCEPT
     Indication: PSORIASIS
     Dosage: 50 MG, 2 TIMES/WK
     Route: 065
     Dates: start: 20150605

REACTIONS (12)
  - Wrist fracture [Unknown]
  - Upper limb fracture [Unknown]
  - Drug dose omission [Unknown]
  - Hypersensitivity [Unknown]
  - Sinusitis [Unknown]
  - Radius fracture [Unknown]
  - Oropharyngeal pain [Unknown]
  - Pain [Unknown]
  - Middle ear effusion [Unknown]
  - Respiratory tract congestion [Unknown]
  - Fall [Unknown]
  - Productive cough [Unknown]

NARRATIVE: CASE EVENT DATE: 2015
